FAERS Safety Report 9715244 (Version 1)
Quarter: 2013Q4

REPORT INFORMATION
  Report Type: Report from Study
  Country: CO (occurrence: CO)
  Receive Date: 20131126
  Receipt Date: 20131126
  Transmission Date: 20140711
  Serious: Yes (Hospitalization)
  Sender: FDA-Public Use
  Company Number: CO-ROCHE-1306623

PATIENT
  Age: 38 Year
  Sex: Female

DRUGS (1)
  1. CELLCEPT [Suspect]
     Indication: RENAL TRANSPLANT
     Route: 048
     Dates: start: 20121219, end: 20131113

REACTIONS (2)
  - Hypercreatinaemia [Recovering/Resolving]
  - Human polyomavirus infection [Recovered/Resolved]
